FAERS Safety Report 7507145-8 (Version None)
Quarter: 2011Q2

REPORT INFORMATION
  Report Type: 
  Country: None (occurrence: None)
  Receive Date: 20110526
  Receipt Date: 20090213
  Transmission Date: 20111010
  Serious: Yes (Death, Hospitalization, Other)
  Sender: FDA-Public Use
  Company Number: US-BAYER-200912864NA

PATIENT
  Age: 85 Year
  Sex: Male
  Weight: 87.075 kg

DRUGS (20)
  1. VECURONIUM BROMIDE [Concomitant]
     Dosage: UNK
     Dates: start: 20020110
  2. TOPROL-XL [Concomitant]
     Dosage: 200 MG, QD
     Route: 048
  3. EPINEPHRINE [Concomitant]
     Dosage: UNK
     Dates: start: 20020110
  4. PLASMA [Concomitant]
     Dosage: 2 U, UNK
  5. TRASYLOL [Suspect]
     Indication: CORONARY ARTERY BYPASS
     Dosage: 200 ML PRIME
     Route: 042
     Dates: start: 20020110, end: 20020110
  6. LIDOCAINE [Concomitant]
     Dosage: UNK
     Dates: start: 20020110
  7. VASOTEC [Concomitant]
     Dosage: 20 MG, QD
     Route: 048
  8. HYDROCHLOROTHIAZIDE [Concomitant]
     Dosage: 25 MG, QD
     Route: 048
  9. PLENDIL [Concomitant]
     Dosage: 50 MG, QD
     Route: 048
  10. PROTAMINE SULFATE [Concomitant]
     Dosage: 500 MG, UNK
     Dates: start: 20020110
  11. TRASYLOL [Suspect]
     Dosage: 1 ML, UNK
     Dates: start: 20020110
  12. ACETYLSALICYLIC ACID SRT [Concomitant]
     Dosage: 325 MG, QD
     Route: 048
  13. KEFZOL [Concomitant]
     Dosage: 1 G, UNK
     Dates: start: 20020110
  14. NITROSTAT [Concomitant]
     Dosage: 0.4 MG, UNK
     Route: 060
  15. NIPRIDE [Concomitant]
     Dosage: UNK
  16. HEPARIN [Concomitant]
     Dosage: 36000 U, PRIME
     Dates: start: 20020110
  17. FENTANYL [Concomitant]
     Dosage: UNK
     Dates: start: 20020110
  18. LASIX [Concomitant]
     Dosage: 40 MG, UNK
     Dates: start: 20020110
  19. PLATELETS [Concomitant]
  20. RED BLOOD CELLS [Concomitant]
     Dosage: 2 U, UNK
     Route: 042
     Dates: start: 20020110

REACTIONS (6)
  - RENAL FAILURE [None]
  - PAIN [None]
  - RENAL INJURY [None]
  - RENAL FAILURE ACUTE [None]
  - INJURY [None]
  - UNEVALUABLE EVENT [None]
